FAERS Safety Report 15319534 (Version 1)
Quarter: 2018Q4

REPORT INFORMATION
  Report Type: Spontaneous
  Country: ES (occurrence: ES)
  Receive Date: 20180827
  Receipt Date: 20180827
  Transmission Date: 20190204
  Serious: Yes (Hospitalization)
  Sender: FDA-Public Use
  Company Number: ES-TEVA-2018-ES-947184

PATIENT
  Age: 60 Year
  Sex: Male

DRUGS (1)
  1. LOSART?N/HIDROCLOROTIAZIDA 100 MG/12,5 MG COMPRIMIDO [Suspect]
     Active Substance: HYDROCHLOROTHIAZIDE\LOSARTAN
     Dosage: 1 CP EVERY 12 HOURS
     Route: 048
     Dates: start: 20180315, end: 20180526

REACTIONS (1)
  - Hyponatraemia [Recovered/Resolved]

NARRATIVE: CASE EVENT DATE: 20180524
